FAERS Safety Report 23453452 (Version 1)
Quarter: 2024Q1

REPORT INFORMATION
  Report Type: Report from Study
  Country: TH (occurrence: TH)
  Receive Date: 20240129
  Receipt Date: 20240129
  Transmission Date: 20240410
  Serious: Yes (Other)
  Sender: FDA-Public Use
  Company Number: TH-BAYER-2024A014798

PATIENT
  Age: 26 Year
  Sex: Female

DRUGS (4)
  1. MOXIFLOXACIN [Suspect]
     Active Substance: MOXIFLOXACIN
     Indication: Tuberculosis
  2. BEDAQUILINE [Suspect]
     Active Substance: BEDAQUILINE
  3. LINEZOLID [Suspect]
     Active Substance: LINEZOLID
  4. PRETOMANID [Suspect]
     Active Substance: PRETOMANID

REACTIONS (2)
  - Optic neuritis [None]
  - Off label use [None]
